FAERS Safety Report 7439904-4 (Version None)
Quarter: 2011Q2

REPORT INFORMATION
  Report Type: 
  Country: None (occurrence: None)
  Receive Date: 20110427
  Receipt Date: 20081003
  Transmission Date: 20111010
  Serious: Yes (Other)
  Sender: FDA-Public Use
  Company Number: PHHY2008MX37383

PATIENT
  Age: 83 Year
  Sex: Female

DRUGS (1)
  1. CO-DIOVAN [Suspect]
     Indication: HYPERTENSION
     Dosage: 1 DF, QD
     Dates: start: 20070601

REACTIONS (4)
  - LUNG INFECTION [None]
  - GASTRIC INFECTION [None]
  - HYPERTENSION [None]
  - KIDNEY INFECTION [None]
